FAERS Safety Report 15743964 (Version 2)
Quarter: 2019Q1

REPORT INFORMATION
  Report Type: Spontaneous
  Country: US (occurrence: US)
  Receive Date: 20181220
  Receipt Date: 20190128
  Transmission Date: 20190417
  Serious: No
  Sender: FDA-Public Use
  Company Number: US-BAUSCH-BL-2018-034336

PATIENT
  Age: 59 Year
  Sex: Male
  Weight: 78.09 kg

DRUGS (2)
  1. ZYCLARA [Suspect]
     Active Substance: IMIQUIMOD
     Indication: DYSPLASIA
     Dosage: PUMP
     Route: 061
     Dates: start: 201811, end: 201812
  2. ZYCLARA [Suspect]
     Active Substance: IMIQUIMOD
     Indication: PRODUCT USE IN UNAPPROVED INDICATION

REACTIONS (2)
  - Drug effect incomplete [Recovered/Resolved]
  - Product use in unapproved indication [Recovered/Resolved]

NARRATIVE: CASE EVENT DATE: 201811
